FAERS Safety Report 8900474 (Version 2)
Quarter: 2014Q1

REPORT INFORMATION
  Report Type: Spontaneous
  Country: US (occurrence: US)
  Receive Date: 20121108
  Receipt Date: 20140225
  Transmission Date: 20141002
  Serious: No
  Sender: FDA-Public Use
  Company Number: US-AMGEN-USASP2012038332

PATIENT
  Age: 67 Year
  Sex: Male
  Weight: 72.56 kg

DRUGS (4)
  1. ENBREL [Suspect]
     Indication: RHEUMATOID ARTHRITIS
     Dosage: 50 MG, QWK
     Route: 058
  2. ATENOLOL [Concomitant]
     Dosage: 25 MG, UNK
  3. TRIAMTERENE/HCTZ [Concomitant]
     Dosage: UNK
  4. VITAMIN B [Concomitant]
     Dosage: UNK

REACTIONS (2)
  - Muscle atrophy [Unknown]
  - Injection site swelling [Unknown]
